FAERS Safety Report 12167160 (Version 1)
Quarter: 2016Q1

REPORT INFORMATION
  Report Type: Spontaneous
  Country: US (occurrence: None)
  Receive Date: 20160309
  Receipt Date: 20160309
  Transmission Date: 20160526
  Serious: Yes (Death, Life-Threatening, Hospitalization, Other)
  Sender: FDA-Public Use
  Company Number: None

PATIENT
  Age: 66 Year
  Sex: Male
  Weight: 119 kg

DRUGS (15)
  1. ISOVUE 370 [Suspect]
     Active Substance: IOPAMIDOL
     Indication: COMPUTERISED TOMOGRAM
     Route: 042
  2. FISH OIL [Concomitant]
     Active Substance: FISH OIL
  3. FINASTERIDE. [Concomitant]
     Active Substance: FINASTERIDE
  4. LIDOCAINE-PRILOCAINE [Concomitant]
     Active Substance: LIDOCAINE\PRILOCAINE
  5. SIMVASTATIN. [Concomitant]
     Active Substance: SIMVASTATIN
  6. MAGNESIUM OXIDE. [Concomitant]
     Active Substance: MAGNESIUM OXIDE
  7. PREDNISONE. [Concomitant]
     Active Substance: PREDNISONE
  8. ONDANSETRON [Concomitant]
     Active Substance: ONDANSETRON
  9. DIATRIZOATE-MEGLUMINE + SODIUM 66-10% 00270-0045-35 [Suspect]
     Active Substance: DIATRIZOATE MEGLUMINE\DIATRIZOATE SODIUM
     Indication: COMPUTERISED TOMOGRAM
     Route: 042
  10. METOCLOPRAMIDE. [Concomitant]
     Active Substance: METOCLOPRAMIDE
  11. NYSTATIN. [Concomitant]
     Active Substance: NYSTATIN
  12. RANITIDINE [Concomitant]
     Active Substance: RANITIDINE\RANITIDINE HYDROCHLORIDE
  13. CLOPIDOGREL [Concomitant]
     Active Substance: CLOPIDOGREL BISULFATE
  14. DEXAMETHASONE. [Concomitant]
     Active Substance: DEXAMETHASONE
  15. DIPHENHYDRAMINE/LIDOCAINE/ANTACID [Concomitant]

REACTIONS (7)
  - Contrast media reaction [None]
  - Cardio-respiratory arrest [None]
  - Metabolic acidosis [None]
  - Post procedural complication [None]
  - Erythema [None]
  - Injection site pain [None]
  - Ventricular fibrillation [None]

NARRATIVE: CASE EVENT DATE: 20151208
